FAERS Safety Report 11652815 (Version 1)
Quarter: 2015Q4

REPORT INFORMATION
  Report Type: Spontaneous
  Country: US (occurrence: US)
  Receive Date: 20151022
  Receipt Date: 20151022
  Transmission Date: 20160304
  Serious: Yes (Other)
  Sender: FDA-Public Use
  Company Number: US-PFIZER INC-2015338065

PATIENT
  Age: 74 Year
  Sex: Male
  Weight: 85 kg

DRUGS (3)
  1. DALIUM [Concomitant]
     Dosage: 2.5 MG, 1X/DAY
  2. LOPRAZOL [Concomitant]
     Dosage: UNK
  3. ATORVASTATIN CALCIUM. [Suspect]
     Active Substance: ATORVASTATIN CALCIUM
     Dosage: 20 MG, 1X/DAY
     Route: 048
     Dates: start: 201508, end: 201508

REACTIONS (2)
  - Blood pressure increased [Unknown]
  - Headache [Unknown]
